FAERS Safety Report 19865036 (Version 1)
Quarter: 2021Q3

REPORT INFORMATION
  Report Type: Spontaneous
  Country: US (occurrence: US)
  Receive Date: 20210921
  Receipt Date: 20210921
  Transmission Date: 20211014
  Serious: No
  Sender: FDA-Public Use
  Company Number: None

PATIENT
  Sex: Female
  Weight: 62.55 kg

DRUGS (5)
  1. KEPPRA [Concomitant]
     Active Substance: LEVETIRACETAM
  2. FAMOTIDINE. [Concomitant]
     Active Substance: FAMOTIDINE
  3. GABAPENTIN. [Concomitant]
     Active Substance: GABAPENTIN
  4. LETROZOLE. [Concomitant]
     Active Substance: LETROZOLE
  5. IBRANCE [Suspect]
     Active Substance: PALBOCICLIB
     Indication: BREAST CANCER
     Dosage: ?          OTHER FREQUENCY:DAILY FOR 21/28 D;?
     Route: 048
     Dates: start: 20210301, end: 20210701

REACTIONS (1)
  - Stomatitis [None]
